FAERS Safety Report 25949583 (Version 3)
Quarter: 2025Q4

REPORT INFORMATION
  Report Type: Spontaneous
  Country: EU (occurrence: EU)
  Receive Date: 20251022
  Receipt Date: 20251106
  Transmission Date: 20260117
  Serious: Yes (Death, Life-Threatening, Hospitalization, Other)
  Sender: PFIZER
  Company Number: None

PATIENT
  Age: 76 Year
  Sex: Male

DRUGS (11)
  1. IRINOTECAN HYDROCHLORIDE [Suspect]
     Active Substance: IRINOTECAN HYDROCHLORIDE
     Indication: Anal cancer
     Dosage: FIRST ADMINISTRATION
     Route: 042
     Dates: start: 20250916
  2. FLUOROURACIL [Suspect]
     Active Substance: FLUOROURACIL
     Indication: Anal cancer
     Dosage: FIRST ADMINISTRATION
     Route: 042
     Dates: start: 20250916
  3. LEUCOVORIN CALCIUM [Suspect]
     Active Substance: LEUCOVORIN CALCIUM
     Indication: Anal cancer
     Dosage: FIRST ADMINISTRATION
     Dates: start: 20250916
  4. ERBITUX [Suspect]
     Active Substance: CETUXIMAB
     Indication: Anal cancer
     Dosage: FIRST ADMINISTRATION
     Route: 042
     Dates: start: 20250916
  5. XGEVA [Concomitant]
     Active Substance: DENOSUMAB
     Dosage: 120 MG, MONTHLY (FREQ:28D)
  6. BASSADO [DOXYCYCLINE HYCLATE] [Concomitant]
     Dosage: 100 MG, DAILY (FREQ:24H)
  7. ESOMEPRAZOLE [Concomitant]
     Active Substance: ESOMEPRAZOLE
     Dosage: IN THE MORNING
  8. PREDNISONE [Concomitant]
     Active Substance: PREDNISONE
     Dosage: 25 MG, 1X/DAY (FREQ:24H, AFTER BREAKFAST)
  9. BISOPROLOL FUMARATE [Concomitant]
     Active Substance: BISOPROLOL FUMARATE
     Dosage: 3.75 MG, 2X/DAY (FREQ:12H,MORNING AND EVENING)
  10. DIGOXIN [Concomitant]
     Active Substance: DIGOXIN
     Dosage: 0.125 MG, 1X/DAY (FREQ:24H, IN THE AFTERNOON)
  11. FUROSEMIDE [Concomitant]
     Active Substance: FUROSEMIDE
     Dosage: 25 MG, 1X/DAY (FREQ:24H, IN THE AFTERNOON)

REACTIONS (2)
  - Respiratory failure [Fatal]
  - Interstitial lung disease [Not Recovered/Not Resolved]

NARRATIVE: CASE EVENT DATE: 20250924
